FAERS Safety Report 19178707 (Version 3)
Quarter: 2021Q2

REPORT INFORMATION
  Report Type: Spontaneous
  Country: CO (occurrence: CO)
  Receive Date: 20210426
  Receipt Date: 20210530
  Transmission Date: 20210717
  Serious: Yes (Other)
  Sender: FDA-Public Use
  Company Number: CO-AMGEN-COLSP2021063137

PATIENT
  Age: 57 Year
  Sex: Female

DRUGS (1)
  1. ENBREL [Suspect]
     Active Substance: ETANERCEPT
     Indication: PRODUCT USED FOR UNKNOWN INDICATION
     Dosage: 50 MG, CYCLIC (1 APPLICATION EVERY 8 DAYS)
     Route: 058
     Dates: start: 2011

REACTIONS (4)
  - Nasal septum deviation [Unknown]
  - Off label use [Unknown]
  - Joint dislocation [Unknown]
  - Eating disorder [Unknown]

NARRATIVE: CASE EVENT DATE: 2011
